FAERS Safety Report 12995666 (Version 1)
Quarter: 2016Q4

REPORT INFORMATION
  Report Type: Spontaneous
  Country: FR (occurrence: FR)
  Receive Date: 20161202
  Receipt Date: 20161202
  Transmission Date: 20170207
  Serious: Yes (Other)
  Sender: FDA-Public Use
  Company Number: FR-ELI_LILLY_AND_COMPANY-FR201611011132

PATIENT
  Age: 85 Year
  Sex: Male

DRUGS (4)
  1. AVLANE [Concomitant]
     Active Substance: ETHINYL ESTRADIOL\LEVONORGESTREL
  2. CIALIS [Suspect]
     Active Substance: TADALAFIL
     Indication: ERECTILE DYSFUNCTION
     Dosage: 5 MG, TWICE A WEEK
     Route: 048
     Dates: start: 201611
  3. CIALIS [Suspect]
     Active Substance: TADALAFIL
     Dosage: 5 MG, THREE TIMES A WEEK
     Route: 048
     Dates: start: 201611
  4. MODOPAR [Concomitant]
     Active Substance: BENSERAZIDE HYDROCHLORIDE\LEVODOPA
     Dosage: UNK, QID

REACTIONS (1)
  - Haematuria [Unknown]

NARRATIVE: CASE EVENT DATE: 201611
